FAERS Safety Report 5977977-6 (Version None)
Quarter: 2008Q4

REPORT INFORMATION
  Report Type: 
  Country: None (occurrence: None)
  Receive Date: 20081203
  Receipt Date: 20081112
  Transmission Date: 20090506
  Serious: No
  Sender: FDA-Public Use
  Company Number: US-B.I. PHARMACEUTICALS,INC./RIDGEFIELD-2008-BP-16054BP

PATIENT
  Sex: Male

DRUGS (9)
  1. FLOMAX [Suspect]
     Indication: INCONTINENCE
     Dosage: .4MG
     Route: 048
     Dates: start: 20080917, end: 20081023
  2. FLOMAX [Suspect]
     Indication: MICTURITION URGENCY
  3. FLOMAX [Suspect]
     Indication: NOCTURIA
  4. DIGITEK [Concomitant]
     Indication: CORONARY ARTERY BYPASS
  5. ENALAPRIL MALEATE [Concomitant]
     Indication: HYPERTENSION
     Dosage: 20MG
  6. METOPROLOL [Concomitant]
     Indication: HYPERTENSION
     Dosage: 100MG
  7. DYAZIDE [Concomitant]
     Indication: CORONARY ARTERY BYPASS
  8. ASPIRIN [Concomitant]
     Indication: CORONARY ARTERY BYPASS
  9. DIGOXIN [Concomitant]

REACTIONS (3)
  - INSOMNIA [None]
  - PRURITUS [None]
  - RASH [None]
